FAERS Safety Report 7183551-9 (Version None)
Quarter: 2010Q4

REPORT INFORMATION
  Report Type: 
  Country: None (occurrence: None)
  Receive Date: 20101222
  Receipt Date: 20101220
  Transmission Date: 20110411
  Serious: Yes (Life-Threatening, Hospitalization, Other)
  Sender: FDA-Public Use
  Company Number: PHFR2010GB04788

PATIENT
  Sex: Male
  Weight: 150 kg

DRUGS (2)
  1. CLOZARIL [Suspect]
     Indication: SCHIZOPHRENIA
     Dosage: 200 MG, MORNING, 250 MG AT NIGHT
     Route: 048
     Dates: start: 20020419
  2. CLOZARIL [Suspect]
     Dosage: 200 MG, MORNING
     Route: 048
     Dates: start: 20101017

REACTIONS (5)
  - BLOOD GLUCOSE FLUCTUATION [None]
  - DIZZINESS [None]
  - MALAISE [None]
  - OBESITY [None]
  - TYPE 2 DIABETES MELLITUS [None]
